FAERS Safety Report 15057833 (Version 1)
Quarter: 2018Q2

REPORT INFORMATION
  Report Type: Report from Study
  Country: US (occurrence: US)
  Receive Date: 20180625
  Receipt Date: 20180625
  Transmission Date: 20180711
  Serious: Yes (Death, Other)
  Sender: FDA-Public Use
  Company Number: US-CIPLA LTD.-2018US19379

PATIENT

DRUGS (5)
  1. OXALIPLATIN. [Suspect]
     Active Substance: OXALIPLATIN
     Indication: PANCREATIC CARCINOMA
     Dosage: 50 MG/M^2, IV OVER 60 MIN INFUSION ON DAYS 1, 8, AND 15
     Route: 042
  2. CALCIUM LEUCOVORIN [Suspect]
     Active Substance: LEUCOVORIN CALCIUM
     Indication: PANCREATIC CARCINOMA
     Dosage: 20 MG/M^2, UNK
     Route: 040
  3. FLUOROURACIL. [Suspect]
     Active Substance: FLUOROURACIL
     Indication: PANCREATIC CARCINOMA
     Dosage: 180 MG/M2, (AS CONTINUOUS INFUSION ON DAYS 1 TO 15 VIA AN AMPULATORY CHEMOTHERAPY PUMP
  4. PACLITAXEL ALBUMIN [Suspect]
     Active Substance: PACLITAXEL
     Indication: PANCREATIC CARCINOMA
     Dosage: 60 MG/M^2, FOR 30-MIN IV INFUSION
     Route: 042
  5. BEVACIZUMAB. [Suspect]
     Active Substance: BEVACIZUMAB
     Indication: PANCREATIC CARCINOMA
     Dosage: 5 MG/KG, IV OVER 30 MIN EVERY OTHER WEEK, ON DAYS 1 AND 15
     Route: 042

REACTIONS (4)
  - Death [Fatal]
  - Cholangitis [Unknown]
  - Liver abscess [Unknown]
  - Sepsis [Unknown]
